FAERS Safety Report 8073844-5 (Version None)
Quarter: 2012Q1

REPORT INFORMATION
  Report Type: 
  Country: None (occurrence: None)
  Receive Date: 20120126
  Receipt Date: 20120116
  Transmission Date: 20120608
  Serious: Yes (Death, Other)
  Sender: FDA-Public Use
  Company Number: DE-ROCHE-1032108

PATIENT

DRUGS (6)
  1. ETOPOSIDE [Suspect]
     Indication: B-CELL LYMPHOMA
     Dosage: DAYS 4-7
     Route: 042
  2. MABTHERA [Suspect]
     Indication: B-CELL LYMPHOMA
     Dosage: DAYS 1 AND 8
     Route: 042
  3. CYTARABINE [Suspect]
     Indication: B-CELL LYMPHOMA
     Dosage: DAYS 4-7
     Route: 042
  4. DEXAMETHASONE [Suspect]
     Indication: B-CELL LYMPHOMA
     Dosage: DAYS 1-10
     Route: 048
  5. MELPHALAN HYDROCHLORIDE [Suspect]
     Indication: B-CELL LYMPHOMA
     Dosage: DAY 3
     Route: 042
  6. CARMUSTINE [Suspect]
     Indication: B-CELL LYMPHOMA
     Dosage: DAY 2
     Route: 042

REACTIONS (11)
  - PNEUMONIA [None]
  - INTERSTITIAL LUNG DISEASE [None]
  - HYPERBILIRUBINAEMIA [None]
  - WHITE BLOOD CELL COUNT DECREASED [None]
  - DYSPNOEA [None]
  - MUCOSAL INFLAMMATION [None]
  - FEBRILE NEUTROPENIA [None]
  - TOXICITY TO VARIOUS AGENTS [None]
  - STEM CELL TRANSPLANT [None]
  - PLATELET COUNT DECREASED [None]
  - PANCYTOPENIA [None]
